FAERS Safety Report 20950731 (Version 2)
Quarter: 2022Q2

REPORT INFORMATION
  Report Type: Other
  Country: US (occurrence: None)
  Receive Date: 20220613
  Receipt Date: 20220621
  Transmission Date: 20220721
  Serious: Yes (Other)
  Sender: FDA-Public Use
  Company Number: US-ROCHE-3103305

PATIENT
  Sex: Female
  Weight: 59.4 kg

DRUGS (11)
  1. OCREVUS [Suspect]
     Active Substance: OCRELIZUMAB
     Indication: Relapsing-remitting multiple sclerosis
     Dosage: 600 MG EVERY 6 MONTHS, LAST DATE OF INFUSION- 6/JUL/2021
     Route: 042
     Dates: start: 20210622
  2. OCREVUS [Suspect]
     Active Substance: OCRELIZUMAB
     Dosage: 600 MG EVERY 6 MONTHS,
     Route: 042
     Dates: start: 20220209
  3. DIAZEPAM [Concomitant]
     Active Substance: DIAZEPAM
  4. BACLOFEN [Concomitant]
     Active Substance: BACLOFEN
  5. FLUOXETINE [Concomitant]
     Active Substance: FLUOXETINE HYDROCHLORIDE
  6. GABAPENTIN [Concomitant]
     Active Substance: GABAPENTIN
  7. MOMETASONE [Concomitant]
     Active Substance: MOMETASONE
  8. OXYCODONE [Concomitant]
     Active Substance: OXYCODONE
  9. PANTOPRAZOLE [Concomitant]
     Active Substance: PANTOPRAZOLE
  10. CALCIUM [Concomitant]
     Active Substance: CALCIUM
  11. PERCOCET [Concomitant]
     Active Substance: ACETAMINOPHEN\OXYCODONE HYDROCHLORIDE

REACTIONS (10)
  - Multiple sclerosis [Unknown]
  - JC polyomavirus test positive [Unknown]
  - Memory impairment [Unknown]
  - Defaecation urgency [Unknown]
  - Hypoaesthesia [Unknown]
  - Somnolence [Unknown]
  - CD19 lymphocyte count abnormal [Unknown]
  - Metabolic function test abnormal [Unknown]
  - Blood test abnormal [Unknown]
  - Micturition urgency [Unknown]
